FAERS Safety Report 4733575-3 (Version None)
Quarter: 2005Q3

REPORT INFORMATION
  Report Type: 
  Country: None (occurrence: None)
  Receive Date: 20050729
  Receipt Date: 20050713
  Transmission Date: 20060218
  Serious: No
  Sender: FDA-Public Use
  Company Number: GBS050717854

PATIENT
  Age: 15 Year
  Sex: Male

DRUGS (3)
  1. STRATTERA [Suspect]
     Indication: ATTENTION DEFICIT/HYPERACTIVITY DISORDER
     Dosage: 40 MG
     Dates: start: 20041101
  2. GABAPENTIN [Concomitant]
  3. CLOBAZAM [Concomitant]

REACTIONS (3)
  - ABDOMINAL PAIN [None]
  - APPETITE DISORDER [None]
  - LIVER FUNCTION TEST ABNORMAL [None]
